FAERS Safety Report 8291094-4 (Version None)
Quarter: 2012Q2

REPORT INFORMATION
  Report Type: 
  Country: None (occurrence: None)
  Receive Date: 20120417
  Receipt Date: 20111111
  Transmission Date: 20120825
  Serious: No
  Sender: FDA-Public Use
  Company Number: US-ASTRAZENECA-2011SE60806

PATIENT
  Age: 74 Year
  Sex: Female

DRUGS (32)
  1. OMEPRAZOLE [Suspect]
     Route: 048
  2. NITROGLYCERIN [Concomitant]
  3. TRAZONDONE HCL [Concomitant]
  4. AZITHROMYCIN [Concomitant]
     Indication: SINUSITIS
  5. PROAIR HFA [Concomitant]
  6. METHYLPREDNISOLONE [Concomitant]
     Indication: SINUSITIS
  7. AZITHROMYCIN [Concomitant]
     Indication: EAR INFECTION
  8. VITAMIN D [Concomitant]
  9. ASPIRIN [Concomitant]
  10. SYMBICORT [Concomitant]
  11. ASPAIN [Concomitant]
     Indication: PAIN
  12. ISOSORBIDE MONO ER [Concomitant]
  13. PROMETHAZINE [Concomitant]
     Indication: NAUSEA
  14. PENICILLIN [Concomitant]
  15. METHYLPREDNISOLONE [Concomitant]
     Indication: EAR INFECTION
  16. NEXIUM [Suspect]
     Route: 048
  17. LEVOTHYROXINE SODIUM [Concomitant]
  18. PRILOSEC [Concomitant]
  19. HEPARIN [Concomitant]
  20. CIPROFLOXACIN [Concomitant]
  21. THEOPHYLLINE-SR [Concomitant]
  22. ATENOLOL [Concomitant]
  23. LORAZEPAM [Concomitant]
  24. LIPITOR [Concomitant]
  25. CELEXA [Concomitant]
  26. CLINDAMYCIN [Concomitant]
  27. METRONIDAZOLE [Concomitant]
  28. CALCIUM CARBONATE [Concomitant]
  29. LEXAPRO [Concomitant]
  30. TRAMADOL HCL [Concomitant]
     Indication: PAIN
  31. OXYBUTYNIN CHLORIDE [Concomitant]
     Indication: BLADDER DISORDER
  32. KLONOPIN [Concomitant]
     Indication: NERVOUSNESS

REACTIONS (5)
  - VOMITING [None]
  - MALAISE [None]
  - DRUG DOSE OMISSION [None]
  - SENSATION OF FOREIGN BODY [None]
  - RASH GENERALISED [None]
